FAERS Safety Report 6328679-8 (Version None)
Quarter: 2009Q3

REPORT INFORMATION
  Report Type: 
  Country: None (occurrence: None)
  Receive Date: 20090826
  Receipt Date: 20090818
  Transmission Date: 20100115
  Serious: Yes (Other)
  Sender: FDA-Public Use
  Company Number: PHHY2009JP19730

PATIENT
  Sex: Female
  Weight: 80 kg

DRUGS (3)
  1. DIOVAN HCT [Suspect]
     Indication: HYPERTENSION
     Dosage: 1DF, DAILY
     Route: 048
     Dates: start: 20090319, end: 20090509
  2. CONIEL [Suspect]
     Indication: HYPERTENSION
     Dosage: 8 MG, UNK
     Route: 048
     Dates: start: 20090319, end: 20090520
  3. TENORMIN [Concomitant]
     Indication: TACHYCARDIA
     Dosage: 50 MG, UNK
     Route: 048
     Dates: start: 20090509, end: 20090526

REACTIONS (8)
  - ATRIAL FIBRILLATION [None]
  - BLOOD PRESSURE INADEQUATELY CONTROLLED [None]
  - CARDIAC FAILURE [None]
  - CARDIOTHORACIC RATIO INCREASED [None]
  - DIZZINESS [None]
  - HEADACHE [None]
  - PALPITATIONS [None]
  - PULMONARY CONGESTION [None]
